FAERS Safety Report 7462017-2 (Version None)
Quarter: 2011Q2

REPORT INFORMATION
  Report Type: 
  Country: None (occurrence: None)
  Receive Date: 20110506
  Receipt Date: 20090217
  Transmission Date: 20111010
  Serious: Yes (Hospitalization, Other)
  Sender: FDA-Public Use
  Company Number: US-BAYER-2011-007561

PATIENT
  Age: 68 Year
  Sex: Male
  Weight: 104 kg

DRUGS (13)
  1. ALLOPURINOL [Concomitant]
     Indication: RENAL STONE REMOVAL
     Dosage: 300 MG, QD
     Route: 048
  2. FLOMAX [Concomitant]
     Dosage: 0.4 MG, QD
  3. DILANTIN [Concomitant]
     Indication: CONVULSION
     Dosage: 400 MG PER DAY(MORNING, NOON, DINNER, BEDTIME), UNK
     Route: 048
  4. LEXAPRO [Concomitant]
     Indication: DEPRESSION
     Dosage: 10 MG ONE EVERY OTHER DAY, UNK
     Route: 048
  5. BLOOD CELLS, PACKED HUMAN [Concomitant]
     Dosage: 3822 ML, UNK
  6. TRASYLOL [Suspect]
     Indication: AORTIC VALVE REPLACEMENT
     Dosage: 50ML/HR DRIP
     Route: 042
  7. AGGRENOX [Concomitant]
     Indication: CEREBROVASCULAR ACCIDENT PROPHYLAXIS
     Dosage: 200 MG-25MG, QD
     Route: 048
  8. CARDURA [Concomitant]
     Dosage: 4 MG, QD
     Route: 048
  9. TRASYLOL [Suspect]
     Indication: CARDIAC OPERATION
     Dosage: 1 ML, UNK
     Route: 042
     Dates: start: 20051207, end: 20051207
  10. TRASYLOL [Suspect]
     Indication: HAEMORRHAGE PROPHYLAXIS
     Dosage: 200 ML UNK, UNK
     Route: 042
     Dates: start: 20051207, end: 20051207
  11. PROTAMINE SULFATE [Concomitant]
  12. HEPARIN [Concomitant]
     Dosage: 5000 U, UNK
  13. NEO-SYNEPHRINOL [Concomitant]
     Dosage: 200 MG, UNK

REACTIONS (11)
  - MYOCARDIAL INFARCTION [None]
  - PAIN [None]
  - DEPRESSION [None]
  - CARDIAC DISORDER [None]
  - RENAL FAILURE ACUTE [None]
  - RENAL FAILURE [None]
  - ANXIETY [None]
  - UNEVALUABLE EVENT [None]
  - ANHEDONIA [None]
  - FEAR [None]
  - INJURY [None]
